FAERS Safety Report 12278862 (Version 2)
Quarter: 2016Q2

REPORT INFORMATION
  Report Type: Report from Study
  Country: ES (occurrence: ES)
  Receive Date: 20160418
  Receipt Date: 20160420
  Transmission Date: 20160815
  Serious: Yes (Hospitalization, Other)
  Sender: FDA-Public Use
  Company Number: ES-AMGEN-ESPSL2016047334

PATIENT
  Age: 67 Year
  Sex: Female
  Weight: 80 kg

DRUGS (1)
  1. ARANESP [Suspect]
     Active Substance: DARBEPOETIN ALFA
     Indication: RENAL FAILURE
     Dosage: 150 MCG, QMO
     Route: 058
     Dates: start: 20140827, end: 20150620

REACTIONS (3)
  - Neoplasm malignant [Unknown]
  - Anaemia [Recovered/Resolved]
  - Stress [Unknown]
